FAERS Safety Report 6080547-5 (Version None)
Quarter: 2009Q1

REPORT INFORMATION
  Report Type: 
  Country: None (occurrence: None)
  Receive Date: 20090217
  Receipt Date: 20090210
  Transmission Date: 20090719
  Serious: Yes (Other)
  Sender: FDA-Public Use
  Company Number: B0540471A

PATIENT
  Age: 27 Year
  Sex: Female
  Weight: 50 kg

DRUGS (2)
  1. MODACIN [Suspect]
     Indication: UTERINE INFECTION
     Dosage: 1G TWICE PER DAY
     Route: 042
     Dates: start: 20080926, end: 20081002
  2. UTEMERIN [Suspect]
     Indication: UTERINE CONTRACTIONS ABNORMAL
     Dosage: 300MG PER DAY
     Route: 042
     Dates: start: 20080926, end: 20081009

REACTIONS (4)
  - DRUG EXPOSURE DURING PREGNANCY [None]
  - PLATELET COUNT DECREASED [None]
  - PREMATURE LABOUR [None]
  - THROMBOCYTOPENIA [None]
